FAERS Safety Report 19007645 (Version 3)
Quarter: 2021Q2

REPORT INFORMATION
  Report Type: Spontaneous
  Country: AR (occurrence: AR)
  Receive Date: 20210315
  Receipt Date: 20210623
  Transmission Date: 20210717
  Serious: Yes (Other)
  Sender: FDA-Public Use
  Company Number: AR-PFIZER INC-2021235451

PATIENT
  Age: 64 Year
  Sex: Male

DRUGS (1)
  1. SUTENT [Suspect]
     Active Substance: SUNITINIB MALATE
     Indication: METASTATIC RENAL CELL CARCINOMA
     Dosage: 50 MG, DAILY (NO REST)
     Dates: start: 20200823

REACTIONS (13)
  - Arrhythmia [Unknown]
  - Neuropathy peripheral [Unknown]
  - Nausea [Unknown]
  - Product use issue [Unknown]
  - Localised oedema [Unknown]
  - Diabetes mellitus [Unknown]
  - Illness [Unknown]
  - Atrial fibrillation [Unknown]
  - Ejection fraction abnormal [Unknown]
  - Synovial cyst [Unknown]
  - Off label use [Unknown]
  - Pericardial effusion [Unknown]
  - Pulmonary mass [Unknown]

NARRATIVE: CASE EVENT DATE: 20200823
